FAERS Safety Report 5575872-8 (Version None)
Quarter: 2007Q4

REPORT INFORMATION
  Report Type: 
  Country: None (occurrence: None)
  Receive Date: 20071228
  Receipt Date: 20071221
  Transmission Date: 20080405
  Serious: Yes (Hospitalization)
  Sender: FDA-Public Use
  Company Number: FR-JNJFOC-20071205767

PATIENT

DRUGS (4)
  1. REOPRO [Suspect]
     Indication: DRUG USE FOR UNKNOWN INDICATION
     Route: 042
  2. HEPARIN [Suspect]
     Indication: DRUG USE FOR UNKNOWN INDICATION
     Route: 042
  3. CLOPIDOGREL [Concomitant]
  4. ASPIRIN [Concomitant]

REACTIONS (1)
  - PERICARDIAL HAEMORRHAGE [None]
